FAERS Safety Report 8268434-5 (Version None)
Quarter: 2012Q2

REPORT INFORMATION
  Report Type: 
  Country: None (occurrence: None)
  Receive Date: 20120409
  Receipt Date: 20120328
  Transmission Date: 20120825
  Serious: Yes (Other)
  Sender: FDA-Public Use
  Company Number: JP-VERTEX PHARMACEUTICALS INC.-AE-2012-004724

PATIENT
  Age: 52 Year
  Sex: Male

DRUGS (10)
  1. TELAVIC (TELAPREVIR) [Suspect]
     Indication: HEPATITIS C
     Route: 048
     Dates: start: 20120207, end: 20120318
  2. OLMESARTAN MEDOXOMIL [Concomitant]
     Route: 048
     Dates: start: 20110606
  3. REBETOL [Concomitant]
     Indication: HEPATITIS C
     Route: 048
     Dates: start: 20120207, end: 20120305
  4. PEG-INTRON [Concomitant]
     Indication: HEPATITIS C
     Route: 058
     Dates: start: 20120207, end: 20120313
  5. CONFATANIN [Concomitant]
     Route: 048
     Dates: start: 20110606, end: 20120318
  6. NESINA [Concomitant]
     Route: 048
     Dates: start: 20110606, end: 20120318
  7. AMLODIPINE [Concomitant]
     Route: 048
     Dates: start: 20110606, end: 20120318
  8. REBETOL [Concomitant]
     Route: 048
     Dates: start: 20120306, end: 20120312
  9. REBETOL [Concomitant]
     Route: 048
     Dates: start: 20120313, end: 20120318
  10. URSO 250 [Concomitant]
     Route: 048
     Dates: end: 20120312

REACTIONS (1)
  - NEUTROPHIL COUNT DECREASED [None]
